FAERS Safety Report 4871764-8 (Version None)
Quarter: 2006Q1

REPORT INFORMATION
  Report Type: 
  Country: None (occurrence: None)
  Receive Date: 20060104
  Receipt Date: 20051123
  Transmission Date: 20060701
  Serious: No
  Sender: FDA-Public Use
  Company Number: US-BRISTOL-MYERS SQUIBB COMPANY-13192505

PATIENT
  Age: 68 Year
  Sex: Male
  Weight: 73 kg

DRUGS (11)
  1. TRAZODONE HCL [Suspect]
     Indication: ANXIETY
     Dates: start: 20050922
  2. LIPITOR [Concomitant]
  3. JANTOVEN [Concomitant]
  4. BETACAROTENE [Concomitant]
  5. NATURAL LAXATIVE [Concomitant]
  6. PREVACID [Concomitant]
  7. ESTER-C [Concomitant]
  8. SAW PALMETTO [Concomitant]
  9. ZINC [Concomitant]
  10. PROPANOLOL HYDROCHLORIDE [Concomitant]
  11. CELEXA [Concomitant]

REACTIONS (1)
  - AMNESIA [None]
